FAERS Safety Report 8070383-2 (Version None)
Quarter: 2012Q1

REPORT INFORMATION
  Report Type: 
  Country: None (occurrence: None)
  Receive Date: 20120125
  Receipt Date: 20120118
  Transmission Date: 20120608
  Serious: Yes (Hospitalization)
  Sender: FDA-Public Use
  Company Number: GR-B.I. PHARMACEUTICALS,INC./RIDGEFIELD-2012-EU-00392GB

PATIENT
  Age: 70 Year
  Sex: Male

DRUGS (3)
  1. MICARDIS HCT [Concomitant]
     Indication: HYPERTENSION
  2. NORVASC [Concomitant]
     Indication: HYPERTENSION
  3. PRADAXA [Suspect]
     Indication: ATRIAL FIBRILLATION
     Dosage: 220 MG
     Route: 048
     Dates: start: 20111101

REACTIONS (1)
  - ISCHAEMIC STROKE [None]
